FAERS Safety Report 6623609-3 (Version None)
Quarter: 2010Q1

REPORT INFORMATION
  Report Type: 
  Country: None (occurrence: None)
  Receive Date: 20100310
  Receipt Date: 20091110
  Transmission Date: 20100710
  Serious: No
  Sender: FDA-Public Use
  Company Number: US-BIOGENIDEC-2009BI036262

PATIENT
  Age: 27 Year
  Sex: Male

DRUGS (7)
  1. AVONEX [Suspect]
     Indication: MULTIPLE SCLEROSIS
     Route: 030
     Dates: start: 20080101, end: 20080101
  2. AVONEX [Suspect]
     Route: 030
     Dates: start: 20080101, end: 20080101
  3. AVONEX [Suspect]
     Route: 030
     Dates: start: 20080101, end: 20080101
  4. AVONEX [Suspect]
     Route: 030
     Dates: start: 20080101, end: 20080101
  5. AVONEX [Suspect]
     Route: 030
     Dates: start: 20091005, end: 20091012
  6. AVONEX [Suspect]
     Route: 030
     Dates: start: 20091012, end: 20091019
  7. AVONEX [Suspect]
     Route: 030
     Dates: start: 20091019

REACTIONS (3)
  - FEELING COLD [None]
  - HOT FLUSH [None]
  - INFLUENZA LIKE ILLNESS [None]
